FAERS Safety Report 23932418 (Version 1)
Quarter: 2024Q2

REPORT INFORMATION
  Report Type: Spontaneous
  Country: US (occurrence: None)
  Receive Date: 20240531
  Receipt Date: 20240531
  Transmission Date: 20240716
  Serious: Yes (Other)
  Sender: FDA-Public Use
  Company Number: None

PATIENT
  Age: 56 Year
  Sex: Female

DRUGS (1)
  1. IBRANCE [Suspect]
     Active Substance: PALBOCICLIB
     Indication: Breast cancer female
     Dosage: 100MG QD X 21 XAYS ON AND Y DAYS OFF ORAL?
     Route: 048

REACTIONS (3)
  - Dyschezia [None]
  - Heart rate decreased [None]
  - Alopecia [None]
